APPROVED DRUG PRODUCT: GOPRELTO
Active Ingredient: COCAINE HYDROCHLORIDE
Strength: 4%
Dosage Form/Route: SOLUTION;NASAL
Application: N209963 | Product #001
Applicant: LXO IRELAND DESIGNATED ACTIVITY CO
Approved: Dec 14, 2017 | RLD: Yes | RS: Yes | Type: RX

PATENTS:
Patent 10016407 | Expires: Feb 7, 2037
Patent 9867815 | Expires: Feb 7, 2037
Patent 9867815 | Expires: Feb 7, 2037
Patent 9867815 | Expires: Feb 7, 2037
Patent 10413505 | Expires: Feb 7, 2037
Patent 10420760 | Expires: Feb 7, 2037
Patent 10149843 | Expires: Feb 7, 2037
Patent 10149843 | Expires: Feb 7, 2037
Patent 10933060 | Expires: Feb 7, 2037
Patent 10973811 | Expires: Feb 7, 2037
Patent 10987347 | Expires: Feb 7, 2037
Patent 10894012 | Expires: Feb 7, 2037
Patent 10857095 | Expires: Feb 7, 2037
Patent 10231961 | Expires: Feb 7, 2037
Patent 11040032 | Expires: Feb 7, 2037